FAERS Safety Report 8467041-9 (Version None)
Quarter: 2012Q2

REPORT INFORMATION
  Report Type: 
  Country: None (occurrence: None)
  Receive Date: 20120626
  Receipt Date: 20120613
  Transmission Date: 20120825
  Serious: No
  Sender: FDA-Public Use
  Company Number: US-ASTRAZENECA-2012SE39527

PATIENT
  Age: 76 Year
  Sex: Female
  Weight: 59 kg

DRUGS (5)
  1. ZANTAC [Concomitant]
  2. TAMS [Concomitant]
     Indication: DYSPEPSIA
  3. NEXIUM [Suspect]
     Indication: GASTROOESOPHAGEAL REFLUX DISEASE
     Route: 048
  4. NEXIUM [Suspect]
     Route: 048
  5. PROTONIX [Concomitant]

REACTIONS (4)
  - OESOPHAGEAL PAIN [None]
  - DYSPEPSIA [None]
  - DRUG INEFFECTIVE [None]
  - OFF LABEL USE [None]
